FAERS Safety Report 7867182-0 (Version None)
Quarter: 2011Q4

REPORT INFORMATION
  Report Type: 
  Country: None (occurrence: None)
  Receive Date: 20111028
  Receipt Date: 20111020
  Transmission Date: 20120403
  Serious: Yes (Life-Threatening, Hospitalization, Disabling, Other)
  Sender: FDA-Public Use
  Company Number: US-GLAXOSMITHKLINE-A0949903A

PATIENT
  Age: 68 Year
  Sex: Female

DRUGS (4)
  1. SYNTHROID [Concomitant]
  2. LIPITOR [Concomitant]
  3. VOTRIENT [Suspect]
     Indication: RENAL CELL CARCINOMA
     Dosage: 800MG PER DAY
     Route: 048
     Dates: start: 20111007
  4. LISINOPRIL [Concomitant]

REACTIONS (7)
  - CEREBRAL INFARCTION [None]
  - NUCLEAR MAGNETIC RESONANCE IMAGING BRAIN ABNORMAL [None]
  - CEREBRAL HAEMORRHAGE [None]
  - HYPERTENSION [None]
  - SUBARACHNOID HAEMORRHAGE [None]
  - CONVULSION [None]
  - POSTERIOR REVERSIBLE ENCEPHALOPATHY SYNDROME [None]
